FAERS Safety Report 23718047 (Version 1)
Quarter: 2024Q2

REPORT INFORMATION
  Report Type: Spontaneous
  Country: ES (occurrence: ES)
  Receive Date: 20240408
  Receipt Date: 20240408
  Transmission Date: 20240716
  Serious: Yes (Hospitalization)
  Sender: FDA-Public Use
  Company Number: None

PATIENT
  Age: 23 Year
  Sex: Female

DRUGS (3)
  1. IBUPROFEN [Suspect]
     Active Substance: IBUPROFEN
     Indication: Procedural pain
     Dosage: TIME INTERVAL: TOTAL: IBUPROFENO
     Route: 048
     Dates: start: 20230825, end: 20230825
  2. ACETAMINOPHEN [Concomitant]
     Active Substance: ACETAMINOPHEN
     Indication: Procedural pain
     Dosage: TIME INTERVAL: AS NECESSARY: QUALIGEN 1G EFG EFFERVESCENT TABLETS, 1 TUBE OF 20 TABLETS
     Route: 048
     Dates: start: 20230826
  3. METAMIZOLE [Suspect]
     Active Substance: METAMIZOLE
     Indication: Procedural pain
     Dosage: METAMIZOL
     Route: 048
     Dates: start: 20230825, end: 20230826

REACTIONS (2)
  - Bicytopenia [Recovered/Resolved]
  - Rash [Recovered/Resolved]

NARRATIVE: CASE EVENT DATE: 20230826
